FAERS Safety Report 8860248 (Version 1)
Quarter: 2012Q4

REPORT INFORMATION
  Report Type: 
  Country: DE (occurrence: DE)
  Receive Date: 20121025
  Receipt Date: 20121025
  Transmission Date: 20130627
  Serious: Yes (Hospitalization)
  Sender: FDA-Public Use
  Company Number: PHHY2012DE095431

PATIENT
  Age: 74 Year
  Sex: Female
  Weight: 70 kg

DRUGS (1)
  1. TERBINAFINE [Suspect]
     Indication: NAIL BED INFECTION FUNGAL
     Route: 048
     Dates: start: 20120714, end: 20120803

REACTIONS (9)
  - Drug reaction with eosinophilia and systemic symptoms [Not Recovered/Not Resolved]
  - Rash maculo-papular [Unknown]
  - Skin exfoliation [Unknown]
  - Dermatitis exfoliative [Unknown]
  - Pyrexia [Unknown]
  - Alopecia [Unknown]
  - Transaminases increased [Unknown]
  - Lymphocytosis [Unknown]
  - General physical health deterioration [Not Recovered/Not Resolved]
